FAERS Safety Report 6699335-1 (Version None)
Quarter: 2010Q2

REPORT INFORMATION
  Report Type: 
  Country: None (occurrence: None)
  Receive Date: 20100427
  Receipt Date: 20100421
  Transmission Date: 20101027
  Serious: Yes (Other)
  Sender: FDA-Public Use
  Company Number: CN-NOVOPROD-306439

PATIENT
  Age: 68 Year
  Sex: Male
  Weight: 70 kg

DRUGS (5)
  1. NOVOLIN R [Suspect]
     Indication: TYPE 2 DIABETES MELLITUS
     Dosage: 18 U QAM + 12 U QPM
     Dates: start: 20100312, end: 20100316
  2. NOVOLIN R [Suspect]
     Dosage: 18 U QAM +12 U QPM
     Dates: start: 20071001
  3. NOVOLIN R [Suspect]
     Dosage: 18 U QAM+ 12 U QPM
     Dates: start: 20100316
  4. NIFEDIPINE [Concomitant]
     Indication: HYPERTENSION
     Dosage: 1 TAB, QD
     Route: 048
  5. ENALAPRIL MALEATE [Concomitant]
     Indication: HYPERTENSION
     Dosage: 1 TAB, QD
     Route: 048

REACTIONS (2)
  - PAIN IN EXTREMITY [None]
  - PRODUCT COLOUR ISSUE [None]
